FAERS Safety Report 4475287-X (Version None)
Quarter: 2004Q4

REPORT INFORMATION
  Report Type: 
  Country: None (occurrence: None)
  Receive Date: 20041015
  Receipt Date: 20041006
  Transmission Date: 20050328
  Serious: Yes (Hospitalization)
  Sender: FDA-Public Use
  Company Number: PHBS2004SE13319

PATIENT
  Age: 37 Year
  Sex: Female

DRUGS (3)
  1. SANDIMMUNE [Suspect]
     Indication: DERMATITIS ATOPIC
     Dosage: 150 MG/D
     Route: 048
     Dates: start: 20000101, end: 20040416
  2. ZOLOFT [Suspect]
     Indication: DEPRESSION
     Route: 065
     Dates: start: 20040401, end: 20040401
  3. REMERON [Suspect]
     Indication: DEPRESSION
     Route: 065
     Dates: start: 20040401, end: 20040401

REACTIONS (1)
  - ABORTION MISSED [None]
